FAERS Safety Report 9930649 (Version 1)
Quarter: 2014Q1

REPORT INFORMATION
  Report Type: Spontaneous
  Country: US (occurrence: US)
  Receive Date: 20140227
  Receipt Date: 20140227
  Transmission Date: 20141002
  Serious: No
  Sender: FDA-Public Use
  Company Number: US-AMGEN-USASP2013091010

PATIENT
  Age: 52 Year
  Sex: Male

DRUGS (4)
  1. ENBREL [Suspect]
     Indication: PSORIATIC ARTHROPATHY
     Dosage: 50 MG/ML, 2 TIMES/WK
     Route: 058
     Dates: start: 2008
  2. ENBREL [Suspect]
     Indication: PSORIASIS
  3. IBUPROFEN [Concomitant]
     Dosage: UNK
  4. HYDROCODONE [Concomitant]
     Dosage: UNK

REACTIONS (3)
  - Nasopharyngitis [Unknown]
  - Infection [Unknown]
  - Injection site pain [Unknown]
